FAERS Safety Report 21967216 (Version 4)
Quarter: 2023Q2

REPORT INFORMATION
  Report Type: Report from Study
  Country: US (occurrence: US)
  Receive Date: 20230208
  Receipt Date: 20230526
  Transmission Date: 20230721
  Serious: No
  Sender: FDA-Public Use
  Company Number: US-BIOVITRUM-2023US02050

PATIENT
  Age: 36 Year
  Sex: Female

DRUGS (4)
  1. KINERET [Suspect]
     Active Substance: ANAKINRA
     Indication: Rheumatoid arthritis
     Route: 058
     Dates: start: 202210
  2. KINERET [Suspect]
     Active Substance: ANAKINRA
     Route: 058
     Dates: start: 20201011
  3. KINERET [Suspect]
     Active Substance: ANAKINRA
     Route: 058
     Dates: start: 20201011
  4. KINERET [Suspect]
     Active Substance: ANAKINRA
     Dosage: 100MG DAILY
     Route: 058
     Dates: start: 20221011

REACTIONS (6)
  - Pain [Unknown]
  - Product use issue [Unknown]
  - Pruritus [Unknown]
  - Product dose omission issue [Unknown]
  - Product distribution issue [Unknown]
  - Rash [Unknown]
